FAERS Safety Report 11100158 (Version 1)
Quarter: 2015Q2

REPORT INFORMATION
  Report Type: Spontaneous
  Country: US (occurrence: None)
  Receive Date: 20150507
  Receipt Date: 20150507
  Transmission Date: 20150821
  Serious: No
  Sender: FDA-Public Use
  Company Number: None

PATIENT
  Age: 31 Year
  Sex: Female

DRUGS (2)
  1. BIAXIN [Suspect]
     Active Substance: CLARITHROMYCIN
     Indication: UPPER RESPIRATORY TRACT INFECTION
     Dates: start: 20140306, end: 20140316
  2. MINOCYCLINE [Suspect]
     Active Substance: MINOCYCLINE\MINOCYCLINE HYDROCHLORIDE
     Indication: ACNE
     Dosage: APPROXIMATELY 365 DAYS
     Dates: start: 201303, end: 20140328

REACTIONS (11)
  - Nausea [None]
  - Antinuclear antibody positive [None]
  - Blood bilirubin increased [None]
  - Upper respiratory tract infection [None]
  - Jaundice [None]
  - Blood immunoglobulin G increased [None]
  - Autoimmune disorder [None]
  - Drug-induced liver injury [None]
  - Aspartate aminotransferase increased [None]
  - Alanine aminotransferase increased [None]
  - Pruritus [None]

NARRATIVE: CASE EVENT DATE: 20140326
